FAERS Safety Report 7655685-3 (Version None)
Quarter: 2011Q3

REPORT INFORMATION
  Report Type: 
  Country: None (occurrence: None)
  Receive Date: 20110729
  Receipt Date: 20110719
  Transmission Date: 20111222
  Serious: Yes (Other)
  Sender: FDA-Public Use
  Company Number: MIN-00741

PATIENT
  Age: 57 Year
  Sex: Female

DRUGS (2)
  1. VALPROATE SODIUM [Concomitant]
  2. MINOCYCLINE HCL [Suspect]
     Indication: ACNE

REACTIONS (4)
  - OSTEOARTHRITIS [None]
  - PIGMENTATION DISORDER [None]
  - FOOT DEFORMITY [None]
  - BONE DISORDER [None]
